FAERS Safety Report 9342462 (Version 1)
Quarter: 2013Q2

REPORT INFORMATION
  Report Type: Spontaneous
  Country: US (occurrence: US)
  Receive Date: 20130611
  Receipt Date: 20130611
  Transmission Date: 20140414
  Serious: No
  Sender: FDA-Public Use
  Company Number: US-US-EMD SERONO, INC.-7084525

PATIENT
  Sex: Female
  Weight: 77 kg

DRUGS (4)
  1. REBIF [Suspect]
     Indication: MULTIPLE SCLEROSIS
     Dates: start: 20110101, end: 20111001
  2. BACLOFEN [Concomitant]
     Indication: MULTIPLE SCLEROSIS
  3. VALIUM                             /00017001/ [Concomitant]
     Indication: MULTIPLE SCLEROSIS
  4. NORVAS [Concomitant]
     Indication: HYPERTENSION

REACTIONS (3)
  - Migraine [Recovered/Resolved]
  - Vascular headache [Unknown]
  - Influenza like illness [Unknown]
